FAERS Safety Report 8374624-3 (Version None)
Quarter: 2012Q2

REPORT INFORMATION
  Report Type: 
  Country: None (occurrence: None)
  Receive Date: 20120521
  Receipt Date: 20111019
  Transmission Date: 20120825
  Serious: No
  Sender: FDA-Public Use
  Company Number: US-ASTRAZENECA-2011SE70432

PATIENT
  Sex: Male

DRUGS (4)
  1. TEGRETOL [Concomitant]
     Dosage: UNKNOWN
  2. PRILOSEC OTC [Suspect]
     Route: 048
     Dates: start: 20111012, end: 20111014
  3. ANTIHYPERTENSIVES [Concomitant]
     Dosage: UNKNOWN
  4. KIDNEY STONE MED [Concomitant]
     Dosage: UNKNOWN

REACTIONS (5)
  - FATIGUE [None]
  - DYSPNOEA [None]
  - LETHARGY [None]
  - SOMNOLENCE [None]
  - MOOD SWINGS [None]
